FAERS Safety Report 5026160-X (Version None)
Quarter: 2006Q2

REPORT INFORMATION
  Report Type: 
  Country: None (occurrence: None)
  Receive Date: 20060608
  Receipt Date: 20010720
  Transmission Date: 20061013
  Serious: No
  Sender: FDA-Public Use
  Company Number: 2001-07-1313

PATIENT
  Age: 60 Year
  Sex: Male

DRUGS (1)
  1. ETHYOL [Suspect]
     Indication: ADVERSE DRUG REACTION
     Dosage: SUBCUTANEOUS
     Route: 058
     Dates: start: 20010604, end: 20010713

REACTIONS (2)
  - MUCOSAL INFLAMMATION [None]
  - SKIN REACTION [None]
